FAERS Safety Report 12822618 (Version 1)
Quarter: 2016Q4

REPORT INFORMATION
  Report Type: Spontaneous
  Country: BE (occurrence: BE)
  Receive Date: 20161007
  Receipt Date: 20161007
  Transmission Date: 20170207
  Serious: Yes (Death, Other)
  Sender: FDA-Public Use
  Company Number: BE-009507513-0401BEL00005

PATIENT
  Age: 61 Year
  Sex: Female
  Weight: 75 kg

DRUGS (7)
  1. FLUCONAZOLE. [Concomitant]
     Active Substance: FLUCONAZOLE
     Indication: PROPHYLAXIS
     Dosage: 400 MG, QD
     Route: 041
     Dates: start: 20030802, end: 20030814
  2. SOLU-CORTEF [Concomitant]
     Active Substance: HYDROCORTISONE SODIUM SUCCINATE
     Indication: ADDISON^S DISEASE
  3. CANCIDAS [Suspect]
     Active Substance: CASPOFUNGIN ACETATE
     Indication: ASPERGILLUS INFECTION
     Dosage: 50 MG, QD
     Route: 042
     Dates: start: 20030815, end: 20030918
  4. VORICONAZOLE. [Concomitant]
     Active Substance: VORICONAZOLE
     Indication: GEOTRICHUM INFECTION
     Dosage: 200 MG, QD
     Route: 041
     Dates: start: 20030910, end: 20030922
  5. VORICONAZOLE. [Concomitant]
     Active Substance: VORICONAZOLE
     Indication: ASPERGILLUS INFECTION
  6. SOLU-CORTEF [Concomitant]
     Active Substance: HYDROCORTISONE SODIUM SUCCINATE
     Indication: HYPOTENSION
     Dosage: 50 MG, BID
     Route: 042
     Dates: start: 20030821, end: 20030827
  7. SPORANOX [Concomitant]
     Active Substance: ITRACONAZOLE
     Indication: TRICHOSPORON INFECTION
     Dosage: 200 MG, QD
     Route: 042
     Dates: start: 20030828, end: 20030910

REACTIONS (4)
  - Drug ineffective [Not Recovered/Not Resolved]
  - Multiple organ dysfunction syndrome [Fatal]
  - Fungal infection [Not Recovered/Not Resolved]
  - Septic shock [Fatal]

NARRATIVE: CASE EVENT DATE: 20030908
